FAERS Safety Report 19074242 (Version 1)
Quarter: 2021Q1

REPORT INFORMATION
  Report Type: Spontaneous
  Country: CA (occurrence: CA)
  Receive Date: 20210330
  Receipt Date: 20210330
  Transmission Date: 20210420
  Serious: Yes (Other)
  Sender: FDA-Public Use
  Company Number: CA-PFIZER INC-2021328986

PATIENT
  Age: 59 Year
  Sex: Female

DRUGS (5)
  1. BRENZYS [Suspect]
     Active Substance: ETANERCEPT
     Dosage: PRE?FILLED AUTO INJECTOR
     Route: 058
  2. PLAQUENIL [Concomitant]
     Active Substance: HYDROXYCHLOROQUINE SULFATE
     Route: 065
  3. HYDROXYCHLOROQUINE SULFATE. [Concomitant]
     Active Substance: HYDROXYCHLOROQUINE SULFATE
     Route: 065
  4. ACTEMRA [Concomitant]
     Active Substance: TOCILIZUMAB
     Route: 065
  5. METHOTREXATE SODIUM. [Suspect]
     Active Substance: METHOTREXATE SODIUM
     Route: 065

REACTIONS (4)
  - Nausea [Unknown]
  - Synovitis [Unknown]
  - Alopecia [Unknown]
  - Treatment failure [Unknown]
